FAERS Safety Report 7351485-2 (Version None)
Quarter: 2011Q1

REPORT INFORMATION
  Report Type: 
  Country: None (occurrence: None)
  Receive Date: 20110314
  Receipt Date: 20110228
  Transmission Date: 20110831
  Serious: Yes (Other)
  Sender: FDA-Public Use
  Company Number: AT-MERCK-1102AUT00006

PATIENT
  Age: 67 Year
  Sex: Male
  Weight: 90 kg

DRUGS (5)
  1. VYTORIN [Suspect]
     Indication: DYSLIPIDAEMIA
     Route: 048
     Dates: start: 20090505
  2. PHENPROCOUMON [Concomitant]
     Route: 065
  3. ZOCOR [Concomitant]
     Indication: DYSLIPIDAEMIA
     Route: 048
  4. METFORMIN HYDROCHLORIDE [Concomitant]
     Route: 065
  5. METILDIGOXIN [Concomitant]
     Route: 065

REACTIONS (1)
  - BRONCHIAL NEOPLASM [None]
